FAERS Safety Report 16437173 (Version 3)
Quarter: 2019Q2

REPORT INFORMATION
  Report Type: Report from Study
  Country: None (occurrence: FI)
  Receive Date: 20190615
  Receipt Date: 20190625
  Transmission Date: 20190711
  Serious: Yes (Other)
  Sender: FDA-Public Use
  Company Number: FI-ABBVIE-19K-055-2798496-00

PATIENT
  Age: 58 Year
  Sex: Female
  Weight: 87 kg

DRUGS (8)
  1. CALCIUM CARBONATE, CHOLECALCIFEROL [Concomitant]
     Active Substance: CALCIUM CARBONATE\CHOLECALCIFEROL
     Indication: PRODUCT USED FOR UNKNOWN INDICATION
  2. METOJECT [Concomitant]
     Active Substance: METHOTREXATE SODIUM
     Indication: PRODUCT USED FOR UNKNOWN INDICATION
     Route: 058
     Dates: start: 2017
  3. HUMIRA [Suspect]
     Active Substance: ADALIMUMAB
     Indication: PSORIATIC ARTHROPATHY
     Route: 058
     Dates: start: 20190108
  4. VITAMIN B [Concomitant]
     Active Substance: VITAMIN B
     Indication: PRODUCT USED FOR UNKNOWN INDICATION
     Dosage: SOMETIMES
  5. PANADOL [Concomitant]
     Active Substance: ACETAMINOPHEN
     Indication: PAIN
     Dosage: WHEN NECESSARY
     Route: 048
  6. BURANA [Concomitant]
     Active Substance: IBUPROFEN
     Indication: PAIN
     Dosage: WHEN NECESSARY
     Route: 048
  7. DERMOVAT [Concomitant]
     Active Substance: CLOBETASOL
     Indication: SKIN DISORDER
     Dosage: 0.5 MG/G
  8. ZINC. [Concomitant]
     Active Substance: ZINC
     Indication: PRODUCT USED FOR UNKNOWN INDICATION

REACTIONS (11)
  - Retinal detachment [Recovered/Resolved]
  - Palmoplantar pustulosis [Unknown]
  - Sinusitis [Unknown]
  - Influenza [Recovered/Resolved]
  - Vitreous detachment [Recovered/Resolved]
  - Conjunctivitis [Recovered/Resolved]
  - Cataract [Not Recovered/Not Resolved]
  - Eye disorder [Recovered/Resolved]
  - Chorioretinal scar [Unknown]
  - Photopsia [Recovered/Resolved]
  - Arthropathy [Unknown]

NARRATIVE: CASE EVENT DATE: 2019
